FAERS Safety Report 7394233-2 (Version None)
Quarter: 2011Q2

REPORT INFORMATION
  Report Type: 
  Country: None (occurrence: None)
  Receive Date: 20110405
  Receipt Date: 20110330
  Transmission Date: 20111010
  Serious: Yes (Other)
  Sender: FDA-Public Use
  Company Number: CA-PFIZER INC-2011071724

PATIENT
  Age: 51 Year
  Sex: Female

DRUGS (4)
  1. CELEBREX [Suspect]
     Indication: BACK PAIN
  2. DILAUDID [Concomitant]
     Indication: PAIN IN EXTREMITY
     Dosage: UNK
  3. CELEBREX [Suspect]
     Indication: BURSITIS
     Dosage: 200 MG, UNK
  4. CELEBREX [Suspect]
     Indication: PAIN IN EXTREMITY

REACTIONS (4)
  - TREMOR [None]
  - ANAPHYLACTIC SHOCK [None]
  - SWELLING [None]
  - VOMITING [None]
